FAERS Safety Report 17210101 (Version 1)
Quarter: 2019Q4

REPORT INFORMATION
  Report Type: Report from Study
  Country: RU (occurrence: RU)
  Receive Date: 20191227
  Receipt Date: 20191227
  Transmission Date: 20200122
  Serious: Yes (Hospitalization, Other)
  Sender: FDA-Public Use
  Company Number: RU-SEATTLE GENETICS-2019SGN04484

PATIENT
  Age: 52 Year
  Sex: Male

DRUGS (8)
  1. ENALAPRIL [Concomitant]
     Active Substance: ENALAPRIL
     Indication: HYPERTENSION
     Dosage: 5 MILLIGRAM
     Route: 065
     Dates: start: 201804
  2. ATORVASTATIN [Concomitant]
     Active Substance: ATORVASTATIN
     Indication: HYPERTENSION
     Dosage: 40 MILLIGRAM, QD
     Route: 065
     Dates: start: 201804
  3. BRENTUXIMAB VEDOTIN [Suspect]
     Active Substance: BRENTUXIMAB VEDOTIN
     Dosage: 185 MILLIGRAM
     Route: 065
     Dates: start: 20191107
  4. BRENTUXIMAB VEDOTIN [Suspect]
     Active Substance: BRENTUXIMAB VEDOTIN
     Dosage: 180 MILLIGRAM
     Route: 065
     Dates: start: 20190926
  5. BRENTUXIMAB VEDOTIN [Suspect]
     Active Substance: BRENTUXIMAB VEDOTIN
     Dosage: 180 MILLIGRAM
     Route: 065
     Dates: start: 20191017
  6. BISOPROLOL [Concomitant]
     Active Substance: BISOPROLOL
     Indication: HYPERTENSION
     Dosage: 10 MILLIGRAM, QD
     Route: 065
     Dates: start: 201804
  7. RIVAROXABAN [Concomitant]
     Active Substance: RIVAROXABAN
     Indication: HYPERTENSION
     Dosage: 15 MILLIGRAM, QD
     Route: 065
     Dates: start: 201804
  8. BRENTUXIMAB VEDOTIN [Suspect]
     Active Substance: BRENTUXIMAB VEDOTIN
     Indication: HODGKIN^S DISEASE
     Dosage: 180 MILLIGRAM
     Route: 065
     Dates: start: 20190905

REACTIONS (8)
  - Influenza like illness [Recovered/Resolved]
  - Overdose [Not Recovered/Not Resolved]
  - Infusion related reaction [Recovered/Resolved]
  - Coronary artery disease [Unknown]
  - Eye infection [Recovered/Resolved]
  - Hypertension [Unknown]
  - Angina pectoris [Not Recovered/Not Resolved]
  - Cardiomyopathy [Unknown]

NARRATIVE: CASE EVENT DATE: 20190903
